FAERS Safety Report 6554991-3 (Version None)
Quarter: 2010Q1

REPORT INFORMATION
  Report Type: 
  Country: None (occurrence: None)
  Receive Date: 20100126
  Receipt Date: 20100126
  Transmission Date: 20100710
  Serious: Yes (Life-Threatening, Hospitalization)
  Sender: FDA-Public Use
  Company Number: None

PATIENT
  Age: 36 Year
  Sex: Male
  Weight: 153 kg

DRUGS (2)
  1. ZOSYN [Suspect]
     Indication: BACTERAEMIA
     Dosage: 3.375 EVERY 6 HOURS IV
     Route: 042
     Dates: start: 20100104
  2. CUBICIN [Suspect]
     Indication: BACTERAEMIA
     Dosage: 600 ONCE DAILY IV
     Route: 042
     Dates: start: 20100106

REACTIONS (1)
  - CLOSTRIDIAL INFECTION [None]
